FAERS Safety Report 9929454 (Version 3)
Quarter: 2014Q2

REPORT INFORMATION
  Report Type: Spontaneous
  Country: US (occurrence: US)
  Receive Date: 20140227
  Receipt Date: 20140515
  Transmission Date: 20141212
  Serious: Yes (Hospitalization)
  Sender: FDA-Public Use
  Company Number: US-GLAXOSMITHKLINE-A1061545A

PATIENT
  Age: 75 Year
  Sex: Male

DRUGS (7)
  1. SEREVENT [Suspect]
     Indication: CHRONIC OBSTRUCTIVE PULMONARY DISEASE
     Dosage: 1PUFF TWICE PER DAY
     Route: 055
     Dates: start: 20130607
  2. ALBUTEROL [Concomitant]
  3. IMODIUM AD [Concomitant]
  4. LEVOTHYROXINE [Concomitant]
  5. NITROGLYCERIN [Concomitant]
  6. PANTOPRAZOLE [Concomitant]
  7. CARAFATE [Concomitant]

REACTIONS (5)
  - Myocardial infarction [Unknown]
  - Stent placement [Unknown]
  - Coronary artery occlusion [Unknown]
  - Chest pain [Unknown]
  - Investigation [Recovered/Resolved]
